FAERS Safety Report 6255164-4 (Version None)
Quarter: 2009Q3

REPORT INFORMATION
  Report Type: 
  Country: None (occurrence: None)
  Receive Date: 20090702
  Receipt Date: 20090629
  Transmission Date: 20100115
  Serious: Yes (Death, Hospitalization)
  Sender: FDA-Public Use
  Company Number: PHHY2009IT26538

PATIENT
  Age: 57 Year
  Sex: Male

DRUGS (7)
  1. BASILIXIMAB [Suspect]
     Indication: RENAL TRANSPLANT
  2. BASILIXIMAB [Suspect]
     Indication: IMMUNOSUPPRESSION
  3. METHYLPREDNISOLONE [Suspect]
     Indication: RENAL TRANSPLANT
  4. METHYLPREDNISOLONE [Suspect]
     Indication: IMMUNOSUPPRESSION
  5. TACROLIMUS [Suspect]
     Indication: RENAL TRANSPLANT
  6. MYCOPHENOLATE MOFETIL [Suspect]
     Indication: RENAL TRANSPLANT
  7. PREDNISONE [Suspect]
     Indication: RENAL TRANSPLANT

REACTIONS (8)
  - ABDOMINAL PAIN LOWER [None]
  - AORTIC ANEURYSM RUPTURE [None]
  - ARTERITIS INFECTIVE [None]
  - GRAFT LOSS [None]
  - HAEMORRHAGE [None]
  - PSEUDOMONAS INFECTION [None]
  - PYREXIA [None]
  - RETROPERITONEAL EFFUSION [None]
